FAERS Safety Report 20912010 (Version 4)
Quarter: 2023Q2

REPORT INFORMATION
  Report Type: Spontaneous
  Country: US (occurrence: US)
  Receive Date: 20220603
  Receipt Date: 20230501
  Transmission Date: 20230721
  Serious: No
  Sender: FDA-Public Use
  Company Number: US-PFIZER INC-202200342418

PATIENT
  Age: 81 Year
  Sex: Male

DRUGS (2)
  1. XELJANZ XR [Suspect]
     Active Substance: TOFACITINIB CITRATE
     Dosage: 11 MG, DAILY (1 TABLET BY MOUTH DAILY. SWALLOW WHOLE, DO NOT SPLIT, CRUSH, OR CHEW)
     Route: 048
  2. PFIZER-BIONTECH COVID-19 VACCINE [Concomitant]
     Active Substance: TOZINAMERAN

REACTIONS (6)
  - Off label use [Unknown]
  - Wrong technique in product usage process [Unknown]
  - Dizziness [Unknown]
  - Blister [Unknown]
  - Fatigue [Unknown]
  - Amnesia [Unknown]

NARRATIVE: CASE EVENT DATE: 20220801
